FAERS Safety Report 13757939 (Version 2)
Quarter: 2017Q3

REPORT INFORMATION
  Report Type: Spontaneous
  Country: US (occurrence: US)
  Receive Date: 20170717
  Receipt Date: 20170725
  Transmission Date: 20171127
  Serious: No
  Sender: FDA-Public Use
  Company Number: US-009507513-1707USA002235

PATIENT
  Age: 27 Year
  Sex: Female
  Weight: 166.89 kg

DRUGS (1)
  1. NEXPLANON [Suspect]
     Active Substance: ETONOGESTREL
     Dosage: 1 IMPLANT-3 YEARS-LEFT ARM
     Route: 059
     Dates: start: 20160413

REACTIONS (3)
  - Device breakage [Unknown]
  - No adverse event [Unknown]
  - Weight decreased [Unknown]

NARRATIVE: CASE EVENT DATE: 20160413
